FAERS Safety Report 5566938-7 (Version None)
Quarter: 2007Q4

REPORT INFORMATION
  Report Type: 
  Country: None (occurrence: None)
  Receive Date: 20071219
  Receipt Date: 20070418
  Transmission Date: 20080405
  Serious: No
  Sender: FDA-Public Use
  Company Number: US-BRISTOL-MYERS SQUIBB COMPANY-13751524

PATIENT
  Age: 60 Year
  Sex: Female
  Weight: 62 kg

DRUGS (3)
  1. PRAVACHOL [Suspect]
     Indication: BLOOD CHOLESTEROL INCREASED
     Dosage: INITIATED SOMETIME IN JUNE 2006 - JULY 2006
     Route: 048
     Dates: start: 20060601, end: 20070305
  2. CARTIA XT [Concomitant]
  3. COZAAR [Concomitant]

REACTIONS (8)
  - ALDOLASE INCREASED [None]
  - BLOOD CREATINE PHOSPHOKINASE INCREASED [None]
  - GAIT DISTURBANCE [None]
  - HEPATIC ENZYME INCREASED [None]
  - MYALGIA [None]
  - SKIN ATROPHY [None]
  - VITAMIN D DECREASED [None]
  - WEIGHT DECREASED [None]
